FAERS Safety Report 5384853-9 (Version None)
Quarter: 2007Q3

REPORT INFORMATION
  Report Type: 
  Country: None (occurrence: None)
  Receive Date: 20070711
  Receipt Date: 20070704
  Transmission Date: 20080115
  Serious: Yes (Other)
  Sender: FDA-Public Use
  Company Number: FR-GENENTECH-244149

PATIENT
  Age: 71 Year
  Sex: Female

DRUGS (5)
  1. MABTHERA [Suspect]
     Indication: BURKITT'S LYMPHOMA
     Route: 065
  2. CYCLOPHOSPHAMIDE [Concomitant]
     Indication: BURKITT'S LYMPHOMA
  3. DOXORUBICIN HCL [Concomitant]
     Indication: BURKITT'S LYMPHOMA
  4. VINCRISTINE [Concomitant]
     Indication: BURKITT'S LYMPHOMA
  5. PREDNISONE [Concomitant]
     Indication: BURKITT'S LYMPHOMA

REACTIONS (1)
  - CHRONIC MYELOID LEUKAEMIA [None]
